FAERS Safety Report 21246592 (Version 1)
Quarter: 2022Q3

REPORT INFORMATION
  Report Type: Spontaneous
  Country: IN (occurrence: IN)
  Receive Date: 20220824
  Receipt Date: 20220824
  Transmission Date: 20221026
  Serious: Yes (Hospitalization, Other)
  Sender: FDA-Public Use
  Company Number: IN-SUN PHARMACEUTICAL INDUSTRIES LTD-2022R1-349533

PATIENT
  Age: 40 Year
  Sex: Female

DRUGS (2)
  1. PHENYTOIN [Suspect]
     Active Substance: PHENYTOIN
     Indication: Generalised tonic-clonic seizure
     Dosage: 300 MILLIGRAM, DAILY
     Route: 065
  2. VALPROATE SODIUM [Concomitant]
     Active Substance: VALPROATE SODIUM
     Indication: Generalised tonic-clonic seizure
     Dosage: 200 MILLIGRAM, BID
     Route: 065

REACTIONS (5)
  - Ataxia [Recovering/Resolving]
  - Anticonvulsant drug level increased [Unknown]
  - Atrophy [Recovering/Resolving]
  - Cerebellar atrophy [Recovering/Resolving]
  - Toxicity to various agents [Unknown]
